FAERS Safety Report 5598261-9 (Version None)
Quarter: 2008Q1

REPORT INFORMATION
  Report Type: 
  Country: None (occurrence: None)
  Receive Date: 20080117
  Receipt Date: 20080117
  Transmission Date: 20080703
  Serious: Yes (Other)
  Sender: FDA-Public Use
  Company Number: None

PATIENT
  Age: 84 Year
  Sex: Female
  Weight: 81.6475 kg

DRUGS (1)
  1. DIGITEK 0.25 MG [Suspect]
     Indication: HYPERTENSION
     Dosage: 1 TABLET EVERY DAY PO
     Route: 048
     Dates: start: 20071127, end: 20071230

REACTIONS (1)
  - HALLUCINATIONS, MIXED [None]
